FAERS Safety Report 5345532-7 (Version None)
Quarter: 2007Q2

REPORT INFORMATION
  Report Type: 
  Country: None (occurrence: None)
  Receive Date: 20070601
  Receipt Date: 20070601
  Transmission Date: 20071010
  Serious: Yes (Hospitalization)
  Sender: FDA-Public Use
  Company Number: None

PATIENT
  Age: 73 Year
  Sex: Male
  Weight: 146 kg

DRUGS (2)
  1. INSULIN REG HUMAN 500 UNIT/ML 500 UNIT/ML [Suspect]
     Indication: DIABETES MELLITUS
     Dosage: 30 UNIT + 24UNIT + SLIDINGSCAL QAM AND EVENING SQ
     Route: 058
     Dates: start: 20070131, end: 20070211
  2. INSULIN REG HUMAN 100 UNIT/ML [Suspect]
     Dosage: 30UNIT TID SQ
     Route: 058
     Dates: start: 20070131, end: 20070211

REACTIONS (3)
  - CONFUSIONAL STATE [None]
  - HYPOGLYCAEMIA [None]
  - WRONG DRUG ADMINISTERED [None]
